FAERS Safety Report 17117497 (Version 1)
Quarter: 2019Q4

REPORT INFORMATION
  Report Type: Spontaneous
  Country: FR (occurrence: FR)
  Receive Date: 20191205
  Receipt Date: 20191205
  Transmission Date: 20200122
  Serious: Yes (Other)
  Sender: FDA-Public Use
  Company Number: FR-MYLANLABS-2019M1118781

PATIENT
  Age: 46 Year
  Sex: Female

DRUGS (28)
  1. NORADRENALINE MYLAN [Suspect]
     Active Substance: NOREPINEPHRINE\NOREPINEPHRINE BITARTRATE
     Indication: HAEMODYNAMIC INSTABILITY
     Dosage: PUIS 8 MG
     Route: 042
     Dates: start: 20190509, end: 20190512
  2. TIORFAN [Suspect]
     Active Substance: RACECADOTRIL
     Indication: DIARRHOEA
     Dosage: SI BESOIN
     Route: 048
     Dates: start: 20190522
  3. HEPARINE SODIUM PANPHARMA [Suspect]
     Active Substance: HEPARIN SODIUM
     Indication: THROMBOSIS
     Dosage: PUIS 10000 UI/JOUR
     Route: 042
     Dates: start: 20190510, end: 20190514
  4. HYPNOVEL                           /00634103/ [Suspect]
     Active Substance: MIDAZOLAM HYDROCHLORIDE
     Indication: SEDATION
     Dosage: 50 MILLIGRAM, QD
     Route: 042
     Dates: start: 20190509, end: 20190511
  5. TIORFAN [Suspect]
     Active Substance: RACECADOTRIL
     Indication: DIARRHOEA
     Dosage: 300 MILLIGRAM, QD
     Route: 048
     Dates: start: 20190510, end: 20190511
  6. SUFENTANIL MYLAN [Suspect]
     Active Substance: SUFENTANIL
     Indication: SEDATION
     Dosage: 750 MICROGRAM, QD
     Route: 042
     Dates: start: 20190509, end: 20190512
  7. HYDROCORTISONE UPJOHN [Suspect]
     Active Substance: HYDROCORTISONE
     Indication: ADRENAL INSUFFICIENCY
     Dosage: 200 MILLIGRAM, QD
     Route: 042
     Dates: start: 20190509, end: 20190514
  8. MORPHINE RENAUDIN [Suspect]
     Active Substance: MORPHINE
     Indication: PAIN
     Dosage: 6 MILLIGRAM, TOTAL
     Route: 042
     Dates: start: 20190518, end: 20190518
  9. VANCOMYCINE SANDOZ [Suspect]
     Active Substance: VANCOMYCIN
     Indication: FEBRILE BONE MARROW APLASIA
     Dosage: 1020 MILLIGRAM, QD
     Route: 042
     Dates: start: 20190507, end: 20190511
  10. PARACETAMOL B BRAUN [Suspect]
     Active Substance: ACETAMINOPHEN
     Indication: PYREXIA
     Dosage: 4 GRAM, QD
     Route: 042
     Dates: start: 20190509, end: 20190511
  11. NIMBEX [Suspect]
     Active Substance: CISATRACURIUM BESYLATE
     Indication: SEDATION
     Dosage: 120 MILLIGRAM, QD
     Route: 042
     Dates: start: 20190509, end: 20190511
  12. NOVORAPID [Suspect]
     Active Substance: INSULIN ASPART
     Indication: DIABETES MELLITUS
     Dosage: 25 INTERNATIONAL UNIT, QD
     Route: 042
     Dates: start: 20190509, end: 20190521
  13. EFFERALGAN COD. [Suspect]
     Active Substance: ACETAMINOPHEN\CODEINE PHOSPHATE
     Indication: PYREXIA
     Dosage: 4 GRAM, QD
     Route: 048
     Dates: start: 20190511, end: 20190522
  14. SPECIAFOLDINE [Suspect]
     Active Substance: FOLIC ACID
     Indication: ANAEMIA
     Dosage: 5 MILLIGRAM, QD
     Route: 048
     Dates: start: 20190520
  15. LASILIX [Suspect]
     Active Substance: FUROSEMIDE
     Indication: OEDEMA
     Dosage: 80 MILLIGRAM, TOTAL
     Route: 042
     Dates: start: 20190518, end: 20190518
  16. CIRCADIN [Suspect]
     Active Substance: MELATONIN
     Indication: INSOMNIA
     Dosage: 2 MILLIGRAM, QD
     Route: 048
     Dates: start: 20190522
  17. LOVENOX [Suspect]
     Active Substance: ENOXAPARIN SODIUM
     Indication: PROPHYLAXIS
     Dosage: 4000 INTERNATIONAL UNIT, QD
     Route: 058
     Dates: start: 20190521, end: 20190603
  18. SPASFON                            /00765801/ [Suspect]
     Active Substance: PHLOROGLUCINOL\1,3,5-TRIMETHOXYBENZENE
     Indication: PAIN
     Dosage: UNE AMPOULE
     Route: 042
     Dates: start: 20190509, end: 20190509
  19. PANTOPRAZOLE [Suspect]
     Active Substance: PANTOPRAZOLE
     Indication: PROPHYLAXIS AGAINST GASTROINTESTINAL ULCER
     Dosage: 80 MILLIGRAM, QD
     Route: 048
     Dates: start: 20190522
  20. KETAMINE RENAUDIN [Suspect]
     Active Substance: KETAMINE
     Indication: ANAESTHESIA
     Dosage: 250 MILLIGRAM, TOTAL
     Route: 042
     Dates: start: 20190509, end: 20190509
  21. FLUCORTAC [Suspect]
     Active Substance: FLUDROCORTISONE ACETATE
     Indication: ADRENAL INSUFFICIENCY
     Dosage: 50 MICROGRAM, QD
     Route: 048
     Dates: start: 20190509, end: 20190514
  22. PANTOPRAZOLE SODIUM. [Suspect]
     Active Substance: PANTOPRAZOLE SODIUM
     Indication: GASTRIC MUCOSAL LESION
     Dosage: 80 MILLIGRAM, QD
     Route: 042
     Dates: start: 20190509, end: 20190520
  23. ESMERON [Suspect]
     Active Substance: ROCURONIUM BROMIDE
     Indication: ENDOTRACHEAL INTUBATION
     Dosage: 80 MILLIGRAM
     Route: 042
     Dates: start: 20190509, end: 20190509
  24. CIFLOX                             /00697202/ [Suspect]
     Active Substance: CIPROFLOXACIN HYDROCHLORIDE
     Indication: FEBRILE BONE MARROW APLASIA
     Dosage: 800 MILLIGRAM, QD
     Route: 042
     Dates: start: 20190507, end: 20190508
  25. DOLIPRANE [Suspect]
     Active Substance: ACETAMINOPHEN
     Indication: PYREXIA
     Dosage: 4 GRAM, QD
     Route: 048
     Dates: start: 20190522
  26. TAZOCILLINE [Suspect]
     Active Substance: PIPERACILLIN SODIUM\TAZOBACTAM SODIUM
     Indication: FEBRILE BONE MARROW APLASIA
     Dosage: 12 GRAM, QD
     Route: 042
     Dates: start: 20190507, end: 20190516
  27. PROPOFOL. [Suspect]
     Active Substance: PROPOFOL
     Indication: SEDATION
     Dosage: 1 GRAM, QD
     Route: 042
     Dates: start: 20190512, end: 20190516
  28. ROVAMYCINE                         /00074401/ [Suspect]
     Active Substance: SPIRAMYCIN
     Indication: FEBRILE BONE MARROW APLASIA
     Dosage: 9 MEGA-INTERNATIONAL UNIT, QD
     Route: 048
     Dates: start: 20190507, end: 20190516

REACTIONS (1)
  - Rash maculo-papular [Recovered/Resolved]

NARRATIVE: CASE EVENT DATE: 20190528
